FAERS Safety Report 20709579 (Version 1)
Quarter: 2022Q2

REPORT INFORMATION
  Report Type: Spontaneous
  Country: IT (occurrence: IT)
  Receive Date: 20220414
  Receipt Date: 20220414
  Transmission Date: 20220720
  Serious: Yes (Other)
  Sender: FDA-Public Use
  Company Number: None

PATIENT
  Age: 74 Year
  Sex: Female
  Weight: 100 kg

DRUGS (13)
  1. SERTRALINE [Suspect]
     Active Substance: SERTRALINE HYDROCHLORIDE
     Indication: Major depression
     Route: 048
     Dates: start: 20220307, end: 20220310
  2. ANASTROZOLE [Concomitant]
     Active Substance: ANASTROZOLE
  3. LASIX [Concomitant]
     Active Substance: FUROSEMIDE
     Dosage: STRENGTH 25 MG
  4. DILTIAZEM [Concomitant]
     Active Substance: DILTIAZEM
  5. SEMAGLUTIDE [Concomitant]
     Active Substance: SEMAGLUTIDE
  6. RAMIPRIL [Concomitant]
     Active Substance: RAMIPRIL
  7. ELIQUIS [Concomitant]
     Active Substance: APIXABAN
     Dosage: STRENGTH 5 MG
  8. ATORVASTATIN [Concomitant]
     Active Substance: ATORVASTATIN
  9. ACETAMINOPHEN\CODEINE PHOSPHATE [Concomitant]
     Active Substance: ACETAMINOPHEN\CODEINE PHOSPHATE
     Dosage: 500 MG / 30 MG
  10. INSULIN GLARGINE [Concomitant]
     Active Substance: INSULIN GLARGINE
  11. ALLOPURINOL [Concomitant]
     Active Substance: ALLOPURINOL
  12. METFORMIN HYDROCHLORIDE [Concomitant]
     Active Substance: METFORMIN HYDROCHLORIDE
  13. Luvion [Concomitant]
     Dosage: STRENGTH 50 MG

REACTIONS (1)
  - Myoclonus [Recovered/Resolved]

NARRATIVE: CASE EVENT DATE: 20220308
